FAERS Safety Report 6102911-8 (Version None)
Quarter: 2009Q1

REPORT INFORMATION
  Report Type: 
  Country: None (occurrence: None)
  Receive Date: 20090303
  Receipt Date: 20090303
  Transmission Date: 20090719
  Serious: Yes (Other)
  Sender: FDA-Public Use
  Company Number: None

PATIENT
  Age: 8 Year
  Sex: Female
  Weight: 117.9352 kg

DRUGS (2)
  1. METOCLOPRAMIDE [Suspect]
     Indication: GASTROOESOPHAGEAL REFLUX DISEASE
     Dosage: 10 MG UP TP 4 A DAY PO
     Route: 048
     Dates: start: 20010101, end: 20090228
  2. METOCLOPRAMIDE [Suspect]
     Indication: NAUSEA
     Dosage: 10 MG UP TP 4 A DAY PO
     Route: 048
     Dates: start: 20010101, end: 20090228

REACTIONS (3)
  - DYSKINESIA [None]
  - GENERALISED ANXIETY DISORDER [None]
  - TIC [None]
